FAERS Safety Report 9528374 (Version 1)
Quarter: 2013Q1

REPORT INFORMATION
  Report Type: Spontaneous
  Country: US (occurrence: None)
  Receive Date: 20130314
  Receipt Date: 20130314
  Transmission Date: 20140127
  Serious: No
  Sender: FDA-Public Use
  Company Number: 1208USA011038

PATIENT
  Sex: 0

DRUGS (3)
  1. RIBAVIRIN [Suspect]
     Indication: HEPATITIS C
     Dates: start: 20120824
  2. PEG-INTRON [Suspect]
     Indication: HEPATITIS C
     Route: 058
     Dates: start: 20120824
  3. VICTRELIS [Suspect]
     Indication: HEPATITIS C

REACTIONS (27)
  - Leukopenia [None]
  - Irritability [None]
  - Irritability [None]
  - Mood swings [None]
  - Back pain [None]
  - Pollakiuria [None]
  - Vomiting [None]
  - Influenza like illness [None]
  - Pyrexia [None]
  - Arthralgia [None]
  - Injection site reaction [None]
  - Alopecia [None]
  - Nausea [None]
  - White blood cell count decreased [None]
  - Platelet count decreased [None]
  - Thrombocytopenia [None]
  - Malaise [None]
  - Fatigue [None]
  - Rash [None]
  - Pruritus [None]
  - Insomnia [None]
  - Weight decreased [None]
  - Fatigue [None]
  - Pain [None]
  - Depression [None]
  - Anaemia [None]
  - Haemoglobin decreased [None]
